FAERS Safety Report 5747981-1 (Version None)
Quarter: 2008Q2

REPORT INFORMATION
  Report Type: 
  Country: None (occurrence: None)
  Receive Date: 20080523
  Receipt Date: 20080519
  Transmission Date: 20081010
  Serious: No
  Sender: FDA-Public Use
  Company Number: US-BAXTER-2008BH003345

PATIENT
  Age: 24 Year
  Sex: Female

DRUGS (2)
  1. HEPARIN SODIUM [Suspect]
     Indication: PROPHYLAXIS
     Route: 058
     Dates: start: 20080407, end: 20080407
  2. TOPAMAX [Concomitant]
     Indication: MIGRAINE
     Dosage: DOSE UNIT:UNKNOWN
     Route: 065

REACTIONS (3)
  - DIARRHOEA [None]
  - EXPIRED DRUG ADMINISTERED [None]
  - NAUSEA [None]
